FAERS Safety Report 14643881 (Version 2)
Quarter: 2018Q2

REPORT INFORMATION
  Report Type: Spontaneous
  Country: US (occurrence: US)
  Receive Date: 20180315
  Receipt Date: 20180409
  Transmission Date: 20180711
  Serious: Yes (Hospitalization)
  Sender: FDA-Public Use
  Company Number: US-TEVA-2018-US-869756

PATIENT
  Age: 11 Year
  Sex: Male

DRUGS (4)
  1. FLOVENT HFA [Suspect]
     Active Substance: FLUTICASONE PROPIONATE
     Indication: ASTHMA
     Dosage: 880 MICROGRAM PER DAY; TWO PUFFS TWICE A DAY
     Route: 055
  2. QVAR [Suspect]
     Active Substance: BECLOMETHASONE DIPROPIONATE
     Indication: ASTHMA
     Dosage: 80 MICROGRAM ONE PUFF TWICE A DAY
     Route: 055
  3. TIOTROPIUM BROMIDE [Concomitant]
     Active Substance: TIOTROPIUM BROMIDE
     Route: 055
  4. ADVAIR HFA [Suspect]
     Active Substance: FLUTICASONE PROPIONATE\SALMETEROL XINAFOATE
     Indication: ASTHMA
     Dosage: TWO PUFFS TWICE A DAY
     Route: 055

REACTIONS (8)
  - Abdominal pain [Unknown]
  - Secondary adrenocortical insufficiency [Not Recovered/Not Resolved]
  - Withdrawal syndrome [Unknown]
  - Constipation [Unknown]
  - Overdose [Unknown]
  - Idiopathic intracranial hypertension [Recovering/Resolving]
  - Stress [Unknown]
  - Drug administered to patient of inappropriate age [Unknown]
